FAERS Safety Report 18168470 (Version 1)
Quarter: 2020Q3

REPORT INFORMATION
  Report Type: Spontaneous
  Country: JP (occurrence: JP)
  Receive Date: 20200819
  Receipt Date: 20200819
  Transmission Date: 20201103
  Serious: Yes (Hospitalization)
  Sender: FDA-Public Use
  Company Number: JP-ELI_LILLY_AND_COMPANY-JP202008004973

PATIENT

DRUGS (1)
  1. HUMAN INSULIN 3/7 [Suspect]
     Active Substance: INSULIN HUMAN
     Indication: DIABETES MELLITUS
     Dosage: 60 INTERNATIONAL UNIT, DAILY
     Route: 058

REACTIONS (1)
  - Diabetes mellitus inadequate control [Unknown]
